FAERS Safety Report 9737041 (Version 3)
Quarter: 2015Q3

REPORT INFORMATION
  Report Type: Spontaneous
  Country: US (occurrence: US)
  Receive Date: 20131206
  Receipt Date: 20150804
  Transmission Date: 20151125
  Serious: No
  Sender: FDA-Public Use
  Company Number: US-GILEAD-2009-0024077

PATIENT
  Age: 75 Year
  Sex: Female
  Weight: 60.78 kg

DRUGS (20)
  1. HYDRALAZINE [Concomitant]
     Active Substance: HYDRALAZINE HYDROCHLORIDE
  2. LASIX [Concomitant]
     Active Substance: FUROSEMIDE
  3. ALBUTEROL. [Concomitant]
     Active Substance: ALBUTEROL
  4. DARVOCET-N 100 [Concomitant]
     Active Substance: ACETAMINOPHEN\PROPOXYPHENE NAPSYLATE
  5. POTASSIUM CHLORIDE. [Concomitant]
     Active Substance: POTASSIUM CHLORIDE
  6. DROVANA [Concomitant]
  7. ATIVAN [Concomitant]
     Active Substance: LORAZEPAM
  8. ROCALTROL [Concomitant]
     Active Substance: CALCITRIOL
  9. ERGOCALCIFEROL. [Concomitant]
     Active Substance: ERGOCALCIFEROL
  10. DIGOXIN. [Concomitant]
     Active Substance: DIGOXIN
  11. ASPIRIN. [Concomitant]
     Active Substance: ASPIRIN
  12. TYLENOL 8 HR [Concomitant]
     Active Substance: ACETAMINOPHEN
  13. MUCINEX [Concomitant]
     Active Substance: GUAIFENESIN
  14. NEPHROCAPS [Concomitant]
     Active Substance: ASCORBIC ACID\BIOTIN\CYANOCOBALAMIN\FOLIC ACID\NIACIN\PANTOTHENIC ACID\PYRIDOXINE\RIBOFLAVIN\THIAMINE
  15. PROCRIT [Concomitant]
     Active Substance: ERYTHROPOIETIN
  16. EQL FERROUS SULFATE [Concomitant]
  17. LOPRESSOR HCT [Concomitant]
     Active Substance: HYDROCHLOROTHIAZIDE\METOPROLOL TARTRATE
  18. PULMICORT TURBUHALER [Concomitant]
     Active Substance: BUDESONIDE
  19. LETAIRIS [Suspect]
     Active Substance: AMBRISENTAN
     Indication: PULMONARY ARTERIAL HYPERTENSION
     Route: 048
     Dates: start: 20090802, end: 20090901
  20. REVATIO [Concomitant]
     Active Substance: SILDENAFIL CITRATE

REACTIONS (1)
  - Liver function test abnormal [Unknown]
